FAERS Safety Report 10548198 (Version 1)
Quarter: 2014Q4

REPORT INFORMATION
  Report Type: Spontaneous
  Country: US (occurrence: None)
  Receive Date: 20141024
  Receipt Date: 20141024
  Transmission Date: 20150529
  Serious: Yes (Hospitalization)
  Sender: FDA-Public Use
  Company Number: 2014-US-013693

PATIENT
  Age: 34 Year
  Sex: Female

DRUGS (7)
  1. DULOXETINE [Concomitant]
     Active Substance: DULOXETINE
  2. SEROQUEL [Concomitant]
     Active Substance: QUETIAPINE FUMARATE
  3. RANITIDINE [Concomitant]
     Active Substance: RANITIDINE\RANITIDINE HYDROCHLORIDE
  4. GEODON [Concomitant]
     Active Substance: ZIPRASIDONE HYDROCHLORIDE\ZIPRASIDONE MESYLATE
  5. FAZACLO [Suspect]
     Active Substance: CLOZAPINE
     Route: 048
     Dates: start: 20080820, end: 20080828
  6. DICYCLOMINE (DICYCLOVERINE HYDROCHLORIDE) [Concomitant]
  7. LORAZEPAM. [Concomitant]
     Active Substance: LORAZEPAM

REACTIONS (2)
  - Self injurious behaviour [None]
  - Tachycardia [None]

NARRATIVE: CASE EVENT DATE: 2012
